FAERS Safety Report 10037555 (Version 2)
Quarter: 2014Q2

REPORT INFORMATION
  Report Type: Spontaneous
  Country: US (occurrence: None)
  Receive Date: 20140324
  Receipt Date: 20140410
  Transmission Date: 20141212
  Serious: Yes (Hospitalization)
  Sender: FDA-Public Use
  Company Number: UTC-046069

PATIENT
  Age: 49 Year
  Sex: Female
  Weight: 64.41 kg

DRUGS (4)
  1. REMODULIN [Suspect]
     Indication: PULMONARY ARTERIAL HYPERTENSION
     Dosage: 23.04 UG/KG (0.016 UG/KG, 1 IN 1 MIN), INTRAVENOUS DRIP
     Route: 041
     Dates: start: 20091116
  2. REVATIO (SILDENAFIL CITRATE) [Concomitant]
  3. COUMADIN (WARFARIN SODIUM) [Concomitant]
  4. LETAIRIS (AMBRISENTAN) [Concomitant]

REACTIONS (2)
  - Dyspnoea [None]
  - Dehydration [None]
